FAERS Safety Report 24650068 (Version 16)
Quarter: 2025Q1

REPORT INFORMATION
  Report Type: Spontaneous
  Country: US (occurrence: US)
  Receive Date: 20241122
  Receipt Date: 20250103
  Transmission Date: 20250409
  Serious: Yes (Other)
  Sender: ROCHE
  Company Number: US-ROCHE-10000132414

PATIENT
  Sex: Female

DRUGS (3)
  1. ACTEMRA [Suspect]
     Active Substance: TOCILIZUMAB
     Indication: Giant cell arteritis
     Dosage: EVERY MONDAY
     Route: 058
     Dates: start: 202312
  2. ACTEMRA [Suspect]
     Active Substance: TOCILIZUMAB
     Indication: Polymyalgia rheumatica
     Route: 058
     Dates: start: 202406
  3. PREDNISONE [Suspect]
     Active Substance: PREDNISONE
     Indication: Giant cell arteritis
     Route: 048
     Dates: start: 202305

REACTIONS (14)
  - Hernia [Unknown]
  - Wrong technique in product usage process [Unknown]
  - Pain [Unknown]
  - Abdominal distension [Unknown]
  - Autoimmune disorder [Unknown]
  - Product dose omission issue [Unknown]
  - Delirium [Unknown]
  - Swelling [Unknown]
  - Gait disturbance [Unknown]
  - Device defective [Unknown]
  - Drug ineffective [Unknown]
  - Mental impairment [Not Recovered/Not Resolved]
  - Weight increased [Not Recovered/Not Resolved]
  - Stress [Unknown]

NARRATIVE: CASE EVENT DATE: 20241112
